FAERS Safety Report 23471766 (Version 2)
Quarter: 2024Q4

REPORT INFORMATION
  Report Type: Report from Study
  Country: RS (occurrence: RS)
  Receive Date: 20240202
  Receipt Date: 20241008
  Transmission Date: 20250114
  Serious: Yes (Life-Threatening, Other)
  Sender: ALEXION PHARMACEUTICALS
  Company Number: 2024A025704

PATIENT
  Age: 57 Year
  Weight: 84 kg

DRUGS (12)
  1. SAPHNELO [Suspect]
     Active Substance: ANIFROLUMAB-FNIA
     Indication: Systemic lupus erythematosus
     Dosage: 300 MILLIGRAM, UNK, FREQUENCY: Q4WK
  2. PRONISON [Concomitant]
     Active Substance: PREDNISONE
     Indication: Systemic lupus erythematosus
     Dosage: 15 MG IN THE MORNING
  3. PANTOPRAZOLE SODIUM [Concomitant]
     Active Substance: PANTOPRAZOLE SODIUM
     Indication: Systemic lupus erythematosus
     Dosage: 20 MILLIGRAM, QD
  4. CELLCEPT [Concomitant]
     Active Substance: MYCOPHENOLATE MOFETIL
     Indication: Systemic lupus erythematosus
     Dosage: 250 MG 2X2
  5. BROMAZEPAM [Concomitant]
     Active Substance: BROMAZEPAM
     Indication: Systemic lupus erythematosus
     Dosage: 3 MILLIGRAM, PRN
  6. DIGOXIN, TRIMETOZINE, VERAPAMIL [Concomitant]
     Indication: Systemic lupus erythematosus
     Dosage: 80 MG 2X1
  7. AMILORIDE HYDROCHLORIDE\METHYCLOTHIAZIDE [Concomitant]
     Active Substance: AMILORIDE HYDROCHLORIDE\METHYCLOTHIAZIDE
     Indication: Systemic lupus erythematosus
     Dosage: 1X1 EVERY THIRD DAY
  8. ENALAPRIL [Concomitant]
     Active Substance: ENALAPRIL
     Indication: Systemic lupus erythematosus
     Dosage: 10 MG 1X1
  9. CHOLECALCIFEROL [Concomitant]
     Active Substance: CHOLECALCIFEROL
     Indication: Systemic lupus erythematosus
     Dosage: 35 DROPS PER WEEK
  10. ZOLOFT [Concomitant]
     Active Substance: SERTRALINE HYDROCHLORIDE
     Dosage: 50 MG 2X1
  11. DIKLOFEN DUO [Concomitant]
     Dosage: 75 MG WHEN NEEDED
  12. ARTIFICIAL TEAR [Concomitant]
     Active Substance: LANOLIN\MINERAL OIL\PETROLATUM
     Dosage: 4-6X1 DROP IN BOTH EYES

REACTIONS (1)
  - Anaphylactic reaction [Recovered/Resolved]
